FAERS Safety Report 19321099 (Version 5)
Quarter: 2023Q4

REPORT INFORMATION
  Report Type: Spontaneous
  Country: JP (occurrence: JP)
  Receive Date: 20210527
  Receipt Date: 20231201
  Transmission Date: 20240110
  Serious: Yes (Other)
  Sender: FDA-Public Use
  Company Number: JP-SANOFI-2021SA165148

PATIENT
  Age: 2 Year
  Sex: Male
  Weight: 8.79 kg

DRUGS (18)
  1. SABRIL [Suspect]
     Active Substance: VIGABATRIN
     Indication: Infantile spasms
     Dosage: 220 MG, BID
     Route: 048
     Dates: start: 20191005, end: 20191008
  2. SABRIL [Suspect]
     Active Substance: VIGABATRIN
     Dosage: 330 MG, BID
     Route: 048
     Dates: start: 20191009, end: 20191011
  3. SABRIL [Suspect]
     Active Substance: VIGABATRIN
     Dosage: 440 MG, BID
     Route: 048
     Dates: start: 20191012, end: 20200507
  4. SABRIL [Suspect]
     Active Substance: VIGABATRIN
     Dosage: 500 MG, BID
     Route: 048
     Dates: start: 20200508, end: 20201209
  5. SABRIL [Suspect]
     Active Substance: VIGABATRIN
     Dosage: 250 MG, BID
     Route: 048
     Dates: start: 20201210, end: 20210224
  6. SABRIL [Suspect]
     Active Substance: VIGABATRIN
     Dosage: 125 MG, BID
     Route: 048
     Dates: start: 20210225, end: 20210420
  7. SABRIL [Suspect]
     Active Substance: VIGABATRIN
     Dosage: 62.5 MG, BID
     Route: 048
     Dates: start: 20210421, end: 20210512
  8. CLOBAZAM [Concomitant]
     Active Substance: CLOBAZAM
     Indication: Infantile spasms
     Dosage: DAILY DOSE: 0.5 MG
     Route: 048
     Dates: start: 20201015, end: 20201111
  9. CLOBAZAM [Concomitant]
     Active Substance: CLOBAZAM
     Dosage: DAILY DOSE: 1.0 MG
     Route: 048
     Dates: start: 20201112, end: 20201209
  10. CLOBAZAM [Concomitant]
     Active Substance: CLOBAZAM
     Dosage: DAILY DOSE: 2.0 MG
     Route: 048
     Dates: start: 20201210, end: 20210420
  11. CLOBAZAM [Concomitant]
     Active Substance: CLOBAZAM
     Dosage: DAILY DOSE: 3.0 MG
     Route: 048
     Dates: start: 20210421, end: 20210512
  12. CLOBAZAM [Concomitant]
     Active Substance: CLOBAZAM
     Dosage: DAILY DOSE: 4.0 MG
     Route: 048
     Dates: start: 20210513
  13. VALPROATE SODIUM [Concomitant]
     Active Substance: VALPROATE SODIUM
     Indication: Infantile spasms
     Dosage: DAILY DOSE: 450 MG
     Route: 048
  14. VALPROATE SODIUM [Concomitant]
     Active Substance: VALPROATE SODIUM
     Dosage: DAILY DOSE: 400 MG
     Route: 048
     Dates: start: 20200218
  15. TOPIRAMATE [Concomitant]
     Active Substance: TOPIRAMATE
     Indication: Infantile spasms
     Dosage: DAILY DOSE: 70 MG
     Route: 048
  16. LEVOTHYROXINE SODIUM [Concomitant]
     Active Substance: LEVOTHYROXINE SODIUM
     Indication: Product used for unknown indication
     Dosage: DAILY DOSE: 25 UG
     Route: 048
  17. LEVOCARNITINE [Concomitant]
     Active Substance: LEVOCARNITINE
     Indication: Prophylaxis
     Dosage: DAILY DOSE: 300 MG
     Route: 048
  18. LEVOCARNITINE [Concomitant]
     Active Substance: LEVOCARNITINE
     Indication: Investigation

REACTIONS (2)
  - Cataract [Not Recovered/Not Resolved]
  - Drug ineffective [Unknown]

NARRATIVE: CASE EVENT DATE: 20201026
